FAERS Safety Report 8610623-1 (Version None)
Quarter: 2012Q3

REPORT INFORMATION
  Report Type: 
  Country: None (occurrence: None)
  Receive Date: 20120423
  Receipt Date: 20100707
  Transmission Date: 20120928
  Serious: Yes (Other)
  Sender: FDA-Public Use
  Company Number: PHHY2010US44650

PATIENT
  Age: 86 Year
  Sex: Female

DRUGS (1)
  1. FEMARA [Suspect]
     Indication: BREAST CANCER METASTATIC
     Dosage: 2.5 MG, QD, ORAL
     Route: 048
     Dates: start: 20091201

REACTIONS (4)
  - METASTASES TO BONE [None]
  - NEOPLASM MALIGNANT [None]
  - METASTASES TO SPINE [None]
  - BONE PAIN [None]
